FAERS Safety Report 4489494-3 (Version None)
Quarter: 2004Q4

REPORT INFORMATION
  Report Type: 
  Country: None (occurrence: None)
  Receive Date: 20041101
  Receipt Date: 20041020
  Transmission Date: 20050328
  Serious: No
  Sender: FDA-Public Use
  Company Number: 200413257JP

PATIENT
  Age: 56 Year
  Sex: Female

DRUGS (3)
  1. LASIX [Suspect]
     Dosage: DOSE: UNK
     Route: 048
  2. AMLODIN [Concomitant]
  3. FUROSEMIDE [Concomitant]

REACTIONS (2)
  - CONDITION AGGRAVATED [None]
  - HEPATIC FUNCTION ABNORMAL [None]
